FAERS Safety Report 5308862-0 (Version None)
Quarter: 2007Q2

REPORT INFORMATION
  Report Type: 
  Country: None (occurrence: None)
  Receive Date: 20070418
  Receipt Date: 20070405
  Transmission Date: 20071010
  Serious: Yes (Other)
  Sender: FDA-Public Use
  Company Number: AECAN200700078

PATIENT
  Age: 42 Year
  Sex: Female

DRUGS (14)
  1. GAMUNEX [Suspect]
     Indication: BLOOD IMMUNOGLOBULIN G DECREASED
     Dosage: QM;IV
     Route: 042
  2. SINGULAIR /01362601/ (CON.) [Concomitant]
  3. CES (CON.) [Concomitant]
  4. QVAR (CON.) [Concomitant]
  5. MIRAPEX (CON.) [Concomitant]
  6. ADVAIR (CON.) [Concomitant]
  7. VENTOLIN /00139501/ (CON.) [Concomitant]
  8. CITALOPRAM (CON.) [Concomitant]
  9. HYDROCHLOROTHIAZIDE (CON.) [Concomitant]
  10. DIDROCAL (CON.) [Concomitant]
  11. ACCUPRIL (CON.) [Concomitant]
  12. PANTOLOC /01263202/ (CON.) [Concomitant]
  13. UNIFYL (CON.) [Concomitant]
  14. CONJUGATED ESTROGENS (CON.) [Concomitant]

REACTIONS (2)
  - BLOOD GLUCOSE FLUCTUATION [None]
  - HYPOGLYCAEMIA [None]
